FAERS Safety Report 5338424-0 (Version None)
Quarter: 2007Q2

REPORT INFORMATION
  Report Type: 
  Country: None (occurrence: None)
  Receive Date: 20070405
  Receipt Date: 20061107
  Transmission Date: 20071010
  Serious: No
  Sender: FDA-Public Use
  Company Number: US200611001582

PATIENT
  Age: 24 Year
  Sex: Female

DRUGS (5)
  1. CYMBALTA [Suspect]
     Indication: DEPRESSION
     Dosage: 30 MG, DAILY (1/D), ORAL
     Route: 048
     Dates: start: 20061016
  2. SEROQUEL [Concomitant]
  3. VITAMINS WITH MINERALS [Concomitant]
  4. FOLIC ACID [Concomitant]
  5. NEXIUM [Concomitant]

REACTIONS (3)
  - DISCOMFORT [None]
  - PRURITUS [None]
  - RASH [None]
